FAERS Safety Report 7162529-5 (Version None)
Quarter: 2010Q4

REPORT INFORMATION
  Report Type: 
  Country: None (occurrence: None)
  Receive Date: 20101215
  Receipt Date: 20101210
  Transmission Date: 20110411
  Serious: Yes (Other)
  Sender: FDA-Public Use
  Company Number: US-PFIZER INC-2010169038

PATIENT
  Sex: Female

DRUGS (1)
  1. ZYVOX [Suspect]
     Dosage: UNK
     Route: 048

REACTIONS (3)
  - FEELING ABNORMAL [None]
  - HEART RATE INCREASED [None]
  - PULSE ABNORMAL [None]
